FAERS Safety Report 5653835-1 (Version None)
Quarter: 2008Q1

REPORT INFORMATION
  Report Type: 
  Country: None (occurrence: None)
  Receive Date: 20080206
  Receipt Date: 20071203
  Transmission Date: 20080703
  Serious: Yes (Other)
  Sender: FDA-Public Use
  Company Number: US200712000319

PATIENT
  Age: 71 Year
  Sex: Female

DRUGS (1)
  1. EVISTA [Suspect]

REACTIONS (1)
  - FRACTURE [None]
